FAERS Safety Report 18643069 (Version 1)
Quarter: 2020Q4

REPORT INFORMATION
  Report Type: Spontaneous
  Country: US (occurrence: US)
  Receive Date: 20201218
  Receipt Date: 20201218
  Transmission Date: 20210114
  Serious: Yes (Hospitalization)
  Sender: FDA-Public Use
  Company Number: None

PATIENT
  Age: 74 Year
  Sex: Female

DRUGS (1)
  1. PLEGRIDY [Suspect]
     Active Substance: PEGINTERFERON BETA-1A
     Indication: IRON DEFICIENCY ANAEMIA
     Route: 042
     Dates: start: 20201130, end: 20201218

REACTIONS (1)
  - Infection [None]

NARRATIVE: CASE EVENT DATE: 20201207
